FAERS Safety Report 9735464 (Version 1)
Quarter: 2013Q4

REPORT INFORMATION
  Report Type: Spontaneous
  Country: US (occurrence: US)
  Receive Date: 20131206
  Receipt Date: 20131206
  Transmission Date: 20140711
  Serious: No
  Sender: FDA-Public Use
  Company Number: US-GILEAD-2009-0023260

PATIENT
  Sex: Male
  Weight: 87.09 kg

DRUGS (24)
  1. LETAIRIS [Suspect]
     Indication: PULMONARY ARTERIAL HYPERTENSION
     Route: 048
     Dates: start: 20080728
  2. COUMADIN [Concomitant]
  3. VIAGRA [Concomitant]
  4. OXYGEN [Concomitant]
  5. FUROSEMIDE [Concomitant]
  6. CARBAMAZEPINE [Concomitant]
  7. VALTREX [Concomitant]
  8. CELLCEPT [Concomitant]
  9. METHOTREXATE [Concomitant]
  10. FOLIC ACID [Concomitant]
  11. RAPAMUNE [Concomitant]
  12. PREDNISONE [Concomitant]
  13. AZOPT [Concomitant]
  14. ZITHROMAX [Concomitant]
  15. LIPITOR [Concomitant]
  16. ATENOLOL [Concomitant]
  17. NYSTATIN [Concomitant]
  18. PROGRAF [Concomitant]
  19. ZETIA [Concomitant]
  20. SEPTRA DS [Concomitant]
  21. CENTRUM [Concomitant]
  22. CALTRATE [Concomitant]
  23. TYLENOL [Concomitant]
  24. FLUOXETINE [Concomitant]

REACTIONS (3)
  - Oedema peripheral [Unknown]
  - Headache [Unknown]
  - Nasal congestion [Unknown]
